FAERS Safety Report 9200669 (Version 2)
Quarter: 2013Q4

REPORT INFORMATION
  Report Type: Spontaneous
  Country: GB (occurrence: GB)
  Receive Date: 20130331
  Receipt Date: 20131105
  Transmission Date: 20140711
  Serious: Yes (Hospitalization)
  Sender: FDA-Public Use
  Company Number: GB-TEVA-393992ISR

PATIENT
  Age: 76 Year
  Sex: Female

DRUGS (3)
  1. AZILECT [Suspect]
     Dosage: 1 MILLIGRAM DAILY;
  2. AZILECT [Suspect]
     Dosage: 4 MILLIGRAM DAILY;
  3. STALEVO [Concomitant]
     Dosage: CARBIDOPA 25MG/LEVODOPA 100 MG/ENTACAPONE 200 MG

REACTIONS (3)
  - Serotonin syndrome [Unknown]
  - Medication error [Unknown]
  - Accidental overdose [Unknown]
